FAERS Safety Report 5572504-X (Version None)
Quarter: 2007Q4

REPORT INFORMATION
  Report Type: 
  Country: None (occurrence: None)
  Receive Date: 20071219
  Receipt Date: 20071205
  Transmission Date: 20080405
  Serious: Yes (Death)
  Sender: FDA-Public Use
  Company Number: 2007US003060

PATIENT
  Age: 66 Year
  Sex: Male

DRUGS (2)
  1. PROGRAF [Suspect]
     Indication: LIVER TRANSPLANT
  2. PREDNISOLONE ACETATE [Suspect]
     Indication: LIVER TRANSPLANT

REACTIONS (10)
  - ALANINE AMINOTRANSFERASE INCREASED [None]
  - ANURIA [None]
  - ASCITES [None]
  - ASPARTATE AMINOTRANSFERASE INCREASED [None]
  - CAPILLARY LEAK SYNDROME [None]
  - DENGUE FEVER [None]
  - HEPATOMEGALY [None]
  - JAUNDICE [None]
  - PLATELET COUNT DECREASED [None]
  - SHOCK [None]
